FAERS Safety Report 8644697 (Version 3)
Quarter: 2012Q4

REPORT INFORMATION
  Report Type: 
  Country: JP (occurrence: JP)
  Receive Date: 20120702
  Receipt Date: 20120910
  Transmission Date: 20130627
  Serious: Yes (Hospitalization)
  Sender: FDA-Public Use
  Company Number: JP-GE HEALTHCARE MEDICAL DIAGNOSTICS-MSTR-NO-1206S-0042

PATIENT
  Age: 51 Year
  Sex: Female
  Weight: 49 kg

DRUGS (9)
  1. METASTRON [Suspect]
     Indication: METASTATIC PAIN
     Dosage: dose not reported
     Route: 042
     Dates: start: 20110628, end: 20110628
  2. ADRIAMYCIN [Concomitant]
  3. CYCLOPHOSPHAMIDE [Concomitant]
  4. DOCETAXEL [Concomitant]
  5. LEUPLIN [Concomitant]
  6. ARIMIDEX [Concomitant]
  7. FEMARA [Concomitant]
  8. ZOMETA [Concomitant]
  9. HERCEPTIN [Concomitant]

REACTIONS (2)
  - Acute promyelocytic leukaemia [Recovering/Resolving]
  - Pancytopenia [Recovering/Resolving]
